FAERS Safety Report 21269525 (Version 1)
Quarter: 2022Q3

REPORT INFORMATION
  Report Type: Spontaneous
  Country: US (occurrence: None)
  Receive Date: 20220829
  Receipt Date: 20220829
  Transmission Date: 20221027
  Serious: Yes (Disabling)
  Sender: FDA-Public Use
  Company Number: None

PATIENT
  Age: 33 Year
  Sex: Female
  Weight: 81 kg

DRUGS (5)
  1. DIAZEPAM [Suspect]
     Active Substance: DIAZEPAM
     Indication: Anxiety
     Dosage: OTHER QUANTITY : 0.5 TABLET(S);?FREQUENCY : TWICE A DAY;?
     Route: 048
  2. CLONAZEPAM [Suspect]
     Active Substance: CLONAZEPAM
     Indication: Anxiety
     Dosage: OTHER QUANTITY : 1 TABLET(S);?FREQUENCY : EVERY 8 HOURS;?
     Route: 048
     Dates: start: 20210802, end: 20220103
  3. LEXAPRO [Suspect]
     Active Substance: ESCITALOPRAM OXALATE
  4. ZOLOFT [Suspect]
     Active Substance: SERTRALINE HYDROCHLORIDE
  5. VITAMINS [Concomitant]
     Active Substance: VITAMINS

REACTIONS (33)
  - Panic attack [None]
  - Insomnia [None]
  - Nightmare [None]
  - Sexual dysfunction [None]
  - Dyspareunia [None]
  - Nausea [None]
  - Dizziness [None]
  - Anxiety [None]
  - Symptom recurrence [None]
  - Drug tolerance [None]
  - Withdrawal syndrome [None]
  - Diarrhoea [None]
  - Fatigue [None]
  - Hyperacusis [None]
  - Photosensitivity reaction [None]
  - Headache [None]
  - Muscle spasms [None]
  - Muscle spasms [None]
  - Vision blurred [None]
  - Depression [None]
  - Decreased appetite [None]
  - Heavy menstrual bleeding [None]
  - Palpitations [None]
  - Feeling abnormal [None]
  - Learning disorder [None]
  - Postural orthostatic tachycardia syndrome [None]
  - Bedridden [None]
  - Myalgia [None]
  - Drug intolerance [None]
  - Agoraphobia [None]
  - Post-traumatic stress disorder [None]
  - Condition aggravated [None]
  - Drug dependence [None]

NARRATIVE: CASE EVENT DATE: 20210802
